FAERS Safety Report 24612214 (Version 1)
Quarter: 2024Q4

REPORT INFORMATION
  Report Type: Spontaneous
  Country: IN (occurrence: IN)
  Receive Date: 20241113
  Receipt Date: 20241113
  Transmission Date: 20250115
  Serious: Yes (Life-Threatening, Hospitalization, Other)
  Sender: CIPLA
  Company Number: IN-MLMSERVICE-20241029-PI239614-00298-1

PATIENT

DRUGS (8)
  1. SIMVASTATIN [Suspect]
     Active Substance: SIMVASTATIN
     Indication: Acute myocardial infarction
     Dosage: UNK
     Route: 065
  2. STREPTOKINASE [Concomitant]
     Active Substance: STREPTOKINASE
     Indication: Acute myocardial infarction
     Dosage: 1.5MILLION IU IN 100NS OVER 1HR
     Route: 065
  3. HEPARIN [Concomitant]
     Active Substance: HEPARIN SODIUM
     Indication: Acute myocardial infarction
     Dosage: 5000 INTERNATIONAL UNIT, QID ([IU] (IU(1000))
     Route: 065
  4. ASPIRIN [Concomitant]
     Active Substance: ASPIRIN
     Indication: Acute myocardial infarction
     Dosage: 300 MG, UNKNOWN
     Route: 065
  5. CLOPIDOGREL [Concomitant]
     Active Substance: CLOPIDOGREL BISULFATE
     Indication: Acute myocardial infarction
     Dosage: 75 MG, UNKNOWN
     Route: 065
  6. RANITIDINE [Concomitant]
     Active Substance: RANITIDINE
     Indication: Acute myocardial infarction
     Dosage: 50 MG/2ML (25 MG/ML), UNKNOWN
     Route: 065
  7. ENALAPRIL [Concomitant]
     Active Substance: ENALAPRIL
     Indication: Acute myocardial infarction
     Dosage: 2.5 MILLIGRAM, UNKNOWN
     Route: 065
  8. ASPIRIN [Concomitant]
     Active Substance: ASPIRIN
     Indication: Acute myocardial infarction
     Dosage: 300 MILLIGRAM
     Route: 065

REACTIONS (2)
  - Acute kidney injury [Recovering/Resolving]
  - Rhabdomyolysis [Recovering/Resolving]
